FAERS Safety Report 7704364-2 (Version None)
Quarter: 2011Q3

REPORT INFORMATION
  Report Type: 
  Country: None (occurrence: None)
  Receive Date: 20110823
  Receipt Date: 20110815
  Transmission Date: 20111222
  Serious: Yes (Other)
  Sender: FDA-Public Use
  Company Number: JP-MERCK-1107USA03062

PATIENT
  Age: 66 Year
  Sex: Female
  Weight: 48 kg

DRUGS (4)
  1. OLOPATADINE HCL [Concomitant]
     Indication: HYPERSENSITIVITY
     Route: 048
  2. COZAAR [Suspect]
     Indication: HYPERTENSION
     Route: 048
     Dates: start: 20040101, end: 20100801
  3. CARVEDILOL [Suspect]
     Indication: HYPERTENSION
     Route: 048
     Dates: start: 20050101, end: 20100101
  4. MUCOSTA [Concomitant]
     Indication: GASTRITIS
     Route: 048

REACTIONS (1)
  - DERMATITIS BULLOUS [None]
